FAERS Safety Report 11908228 (Version 1)
Quarter: 2016Q1

REPORT INFORMATION
  Report Type: Spontaneous
  Country: None (occurrence: DK)
  Receive Date: 20160111
  Receipt Date: 20160111
  Transmission Date: 20160526
  Serious: Yes (Hospitalization)
  Sender: FDA-Public Use
  Company Number: DK-MERCK KGAA-1046349

PATIENT

DRUGS (1)
  1. NOVOTHYROX [Suspect]
     Active Substance: LEVOTHYROXINE SODIUM

REACTIONS (14)
  - Head discomfort [None]
  - Muscular weakness [None]
  - Myalgia [None]
  - Diarrhoea [None]
  - Weight decreased [None]
  - Arthralgia [None]
  - Chest pain [None]
  - Heart rate irregular [None]
  - Headache [None]
  - Sleep disorder [None]
  - Hyperhidrosis [None]
  - Erythema [None]
  - Vomiting [None]
  - Tremor [None]
